FAERS Safety Report 21368582 (Version 2)
Quarter: 2022Q3

REPORT INFORMATION
  Report Type: Other
  Country: BR (occurrence: None)
  Receive Date: 20220923
  Receipt Date: 20220929
  Transmission Date: 20221027
  Serious: Yes (Hospitalization)
  Sender: FDA-Public Use
  Company Number: BR-ROCHE-3181549

PATIENT
  Sex: Female
  Weight: 43 kg

DRUGS (2)
  1. AVASTIN [Suspect]
     Active Substance: BEVACIZUMAB
     Indication: Colorectal cancer
     Dosage: ON 20/JUN/2022, SHE RECEIVED THE LATEST ADMINISTRATION OF BEVACIZUMAB.
     Route: 065
     Dates: start: 20211207
  2. AVASTIN [Suspect]
     Active Substance: BEVACIZUMAB
     Route: 065
     Dates: start: 20220622

REACTIONS (4)
  - Abdominal pain [Recovering/Resolving]
  - Memory impairment [Recovering/Resolving]
  - Constipation [Recovering/Resolving]
  - Asthenia [Recovering/Resolving]
